FAERS Safety Report 5842657-4 (Version None)
Quarter: 2008Q3

REPORT INFORMATION
  Report Type: 
  Country: None (occurrence: None)
  Receive Date: 20080812
  Receipt Date: 20080804
  Transmission Date: 20090109
  Serious: Yes (Other)
  Sender: FDA-Public Use
  Company Number: US-ELI_LILLY_AND_COMPANY-US200808001006

PATIENT
  Sex: Female

DRUGS (8)
  1. FORTEO [Suspect]
     Dosage: UNK, UNK
     Dates: start: 20080201, end: 20080101
  2. FORTEO [Suspect]
     Dates: start: 20080612
  3. VISTARIL [Concomitant]
     Dosage: 50 MG, 4/D
  4. PERCOCET [Concomitant]
     Dosage: UNK, AS NEEDED
  5. VITAMIN TAB [Concomitant]
  6. STOOL SOFTENER [Concomitant]
  7. EFFEXOR [Concomitant]
     Dosage: 75 MG, 4/D
  8. CLONAZEPAM [Concomitant]
     Dosage: 0.5 MG, 2/D

REACTIONS (6)
  - BRONCHITIS [None]
  - HAEMOGLOBIN DECREASED [None]
  - LIMB DISCOMFORT [None]
  - MUSCULOSKELETAL DISCOMFORT [None]
  - OEDEMA PERIPHERAL [None]
  - SKIN LESION [None]
